FAERS Safety Report 19658473 (Version 7)
Quarter: 2022Q2

REPORT INFORMATION
  Report Type: Report from Study
  Country: US (occurrence: US)
  Receive Date: 20210805
  Receipt Date: 20220613
  Transmission Date: 20220721
  Serious: Yes (Hospitalization, Other)
  Sender: FDA-Public Use
  Company Number: US-AUROBINDO-AUR-APL-2021-033846

PATIENT
  Age: 45 Year
  Sex: Female
  Weight: 43.9 kg

DRUGS (4)
  1. BELINOSTAT [Suspect]
     Active Substance: BELINOSTAT
     Indication: Acute myeloid leukaemia
     Dosage: 5360 MILLIGRAM
     Route: 065
     Dates: start: 20200417
  2. BELINOSTAT [Suspect]
     Active Substance: BELINOSTAT
     Dosage: 4160 MILLIGRAM
     Route: 065
     Dates: start: 20200511
  3. PEVONEDISTAT [Suspect]
     Active Substance: PEVONEDISTAT
     Indication: Product used for unknown indication
     Dosage: 81 MILLIGRAM
     Route: 065
     Dates: start: 20200417
  4. PEVONEDISTAT [Suspect]
     Active Substance: PEVONEDISTAT
     Dosage: 52 MILLIGRAM
     Route: 065
     Dates: start: 20200511

REACTIONS (55)
  - Device related infection [Unknown]
  - Platelet count decreased [Unknown]
  - White blood cell count decreased [Unknown]
  - Neutrophil count decreased [Unknown]
  - Lymphocyte count decreased [Unknown]
  - Fungaemia [Unknown]
  - Anxiety [Unknown]
  - Anaemia [Unknown]
  - Retinopathy of prematurity [Unknown]
  - Electrocardiogram QT prolonged [Unknown]
  - Hypokalaemia [Unknown]
  - Hypertension [Unknown]
  - Dysgeusia [Unknown]
  - Back pain [Unknown]
  - Non-cardiac chest pain [Unknown]
  - Gastrointestinal disorder [Unknown]
  - Diarrhoea [Unknown]
  - Depression [Unknown]
  - Haematuria [Unknown]
  - Dizziness [Unknown]
  - Headache [Unknown]
  - Pain in jaw [Unknown]
  - Dehydration [Unknown]
  - Hyperglycaemia [Unknown]
  - Hypoalbuminaemia [Unknown]
  - Hypocalcaemia [Unknown]
  - Hypomagnesaemia [Unknown]
  - Hypophosphataemia [Unknown]
  - Bone pain [Unknown]
  - Haemorrhoids [Unknown]
  - Fatigue [Unknown]
  - Stomatitis [Unknown]
  - Nausea [Unknown]
  - Oesophagitis [Unknown]
  - Dry mouth [Unknown]
  - Vision blurred [Unknown]
  - Dry skin [Unknown]
  - Purpura [Unknown]
  - Hypotension [Unknown]
  - Pain [Unknown]
  - Pyrexia [Unknown]
  - Chills [Unknown]
  - Photosensitivity reaction [Unknown]
  - Anal incontinence [Unknown]
  - Dyspnoea [Unknown]
  - Face oedema [Unknown]
  - Arthritis [Unknown]
  - Mouth haemorrhage [Unknown]
  - Vaginal haemorrhage [Unknown]
  - Adrenal insufficiency [Unknown]
  - Blood lactate dehydrogenase increased [Unknown]
  - Gastrooesophageal reflux disease [Unknown]
  - Scratch [Unknown]
  - Gait disturbance [Unknown]
  - Vulvovaginal dryness [Unknown]

NARRATIVE: CASE EVENT DATE: 20200420
